FAERS Safety Report 8144850-7 (Version None)
Quarter: 2012Q1

REPORT INFORMATION
  Report Type: 
  Country: None (occurrence: None)
  Receive Date: 20120217
  Receipt Date: 20120109
  Transmission Date: 20120608
  Serious: Yes (Hospitalization)
  Sender: FDA-Public Use
  Company Number: US-GLAXOSMITHKLINE-A0928704A

PATIENT
  Sex: Female

DRUGS (1)
  1. AVANDIA [Suspect]
     Indication: DIABETES MELLITUS
     Route: 048

REACTIONS (5)
  - HEPATIC ENZYME INCREASED [None]
  - HEART RATE DECREASED [None]
  - MYOCARDIAL INFARCTION [None]
  - CARDIAC DISORDER [None]
  - RENAL IMPAIRMENT [None]
